FAERS Safety Report 6612324-8 (Version None)
Quarter: 2010Q1

REPORT INFORMATION
  Report Type: 
  Country: None (occurrence: None)
  Receive Date: 20100303
  Receipt Date: 20100222
  Transmission Date: 20100710
  Serious: Yes (Other)
  Sender: FDA-Public Use
  Company Number: US-SANOFI-AVENTIS-2010SA010625

PATIENT
  Sex: Male

DRUGS (2)
  1. LANTUS [Suspect]
     Indication: SUICIDE ATTEMPT
     Dosage: USED A PARTIAL OF ONE SOLOSTAR AND 4 FULL ONES.
     Route: 058
  2. SOLOSTAR [Suspect]
     Indication: SUICIDE ATTEMPT
     Route: 058

REACTIONS (3)
  - INJECTION SITE HAEMATOMA [None]
  - INTENTIONAL OVERDOSE [None]
  - SUICIDE ATTEMPT [None]
